FAERS Safety Report 20535083 (Version 3)
Quarter: 2022Q1

REPORT INFORMATION
  Report Type: Spontaneous
  Country: US (occurrence: US)
  Receive Date: 20220302
  Receipt Date: 20220315
  Transmission Date: 20220423
  Serious: Yes (Other)
  Sender: FDA-Public Use
  Company Number: US-CELLTRION INC.-2022US002325

PATIENT

DRUGS (2)
  1. TRUXIMA [Suspect]
     Active Substance: RITUXIMAB-ABBS
     Indication: Interstitial lung disease
     Dosage: 1000 MG DAY 0, 15 PLANNED THERAPY DATE: 01 MAR 2022 (NOT YET STARTED)
  2. TRUXIMA [Suspect]
     Active Substance: RITUXIMAB-ABBS
     Indication: Systemic scleroderma

REACTIONS (4)
  - Systemic scleroderma [Unknown]
  - Interstitial lung disease [Unknown]
  - Treatment delayed [Unknown]
  - Off label use [Unknown]
